FAERS Safety Report 4449676-3 (Version None)
Quarter: 2004Q3

REPORT INFORMATION
  Report Type: 
  Country: None (occurrence: None)
  Receive Date: 20040913
  Receipt Date: 20040902
  Transmission Date: 20050211
  Serious: Yes (Hospitalization)
  Sender: FDA-Public Use
  Company Number: 2004231579FR

PATIENT
  Age: 35 Year
  Sex: Male

DRUGS (3)
  1. DOXORUBICIN HCL [Suspect]
     Dosage: 50 MG, CYCLIC, IV
     Route: 042
     Dates: start: 20040521, end: 20040604
  2. BLEOMYCIN SULFATE [Suspect]
     Dosage: 20 MG, CYCLIC, IV
     Route: 042
     Dates: start: 20040521, end: 20040604
  3. DACARBAZINE [Suspect]
     Dosage: 800 MG, CYCLIC, IV
     Route: 042
     Dates: start: 20040521, end: 20040604

REACTIONS (4)
  - DRUG TOXICITY [None]
  - HYPERTHERMIA [None]
  - INTERSTITIAL LUNG DISEASE [None]
  - RESPIRATORY DISTRESS [None]
